FAERS Safety Report 4840451-4 (Version None)
Quarter: 2005Q4

REPORT INFORMATION
  Report Type: 
  Country: None (occurrence: None)
  Receive Date: 20051129
  Receipt Date: 20051129
  Transmission Date: 20060501
  Serious: Yes (Death, Other)
  Sender: FDA-Public Use
  Company Number: None

PATIENT
  Age: 13 Year
  Sex: Female
  Weight: 100.6985 kg

DRUGS (2)
  1. OXYCONTIN [Suspect]
     Indication: PAIN
     Dosage: 20MGS. +40MGS. TWICE A DAY PO
     Route: 048
     Dates: start: 19950401, end: 20020514
  2. MSIR  30MGS. [Suspect]
     Indication: PAIN
     Dosage: 30MGS.  THREE TIMES A DAY PO
     Route: 048
     Dates: start: 20020514, end: 20021026

REACTIONS (1)
  - DRUG DEPENDENCE [None]
